FAERS Safety Report 24668471 (Version 2)
Quarter: 2024Q4

REPORT INFORMATION
  Report Type: Spontaneous
  Country: JP (occurrence: JP)
  Receive Date: 20241127
  Receipt Date: 20241206
  Transmission Date: 20250114
  Serious: Yes (Death, Other)
  Sender: BRISTOL-MYERS SQUIBB COMPANY
  Company Number: JP-BRISTOL-MYERS SQUIBB COMPANY-2024-185115

PATIENT
  Age: 41 Year
  Sex: Male

DRUGS (3)
  1. YERVOY [Suspect]
     Active Substance: IPILIMUMAB
     Indication: Malignant melanoma
     Dosage: IPI+NIVO NUMBER OF DOSES : 3 COURSES
     Route: 041
  2. OPDIVO [Suspect]
     Active Substance: NIVOLUMAB
     Indication: Malignant melanoma
     Dosage: IPI+NIVO NUMBER OF DOSES : 3 COURSES
  3. OPDIVO [Suspect]
     Active Substance: NIVOLUMAB
     Dosage: NIVO ALONE ADMINISTERED 6 COURSES

REACTIONS (1)
  - Death [Fatal]
